FAERS Safety Report 19557753 (Version 1)
Quarter: 2021Q3

REPORT INFORMATION
  Report Type: Spontaneous
  Country: US (occurrence: US)
  Receive Date: 20210715
  Receipt Date: 20210715
  Transmission Date: 20211014
  Serious: Yes (Other)
  Sender: FDA-Public Use
  Company Number: US-BAYER-2021-172945

PATIENT
  Sex: Female

DRUGS (1)
  1. MIRENA [Suspect]
     Active Substance: LEVONORGESTREL
     Indication: CONTRACEPTION
     Dosage: 20 ?G PER DAY,CONTINUOUSLY
     Route: 015
     Dates: start: 201911, end: 20191212

REACTIONS (4)
  - Abortion spontaneous [Recovered/Resolved]
  - Drug ineffective [None]
  - Twin pregnancy [Recovered/Resolved]
  - Pregnancy with contraceptive device [Recovered/Resolved]
